FAERS Safety Report 16329637 (Version 2)
Quarter: 2020Q1

REPORT INFORMATION
  Report Type: Spontaneous
  Country: US (occurrence: US)
  Receive Date: 20190520
  Receipt Date: 20200228
  Transmission Date: 20200409
  Serious: No
  Sender: FDA-Public Use
  Company Number: US-JNJFOC-20190509465

PATIENT
  Age: 69 Year
  Sex: Female
  Weight: 45.4 kg

DRUGS (1)
  1. MINOXIDIL. [Suspect]
     Active Substance: MINOXIDIL
     Indication: ALOPECIA
     Dosage: ONCE OR TWICE A DAY DEPENDING ON WHAT PRODUCT IT IS
     Route: 061

REACTIONS (1)
  - Drug ineffective [Unknown]
